APPROVED DRUG PRODUCT: HYDROCORTISONE VALERATE
Active Ingredient: HYDROCORTISONE VALERATE
Strength: 0.2%
Dosage Form/Route: CREAM;TOPICAL
Application: A075666 | Product #001 | TE Code: AB
Applicant: PADAGIS ISRAEL PHARMACEUTICALS LTD
Approved: May 24, 2000 | RLD: No | RS: No | Type: RX